FAERS Safety Report 16123538 (Version 2)
Quarter: 2019Q2

REPORT INFORMATION
  Report Type: Spontaneous
  Country: BR (occurrence: BR)
  Receive Date: 20190327
  Receipt Date: 20190403
  Transmission Date: 20190711
  Serious: Yes (Death, Hospitalization)
  Sender: FDA-Public Use
  Company Number: BR-PFIZER INC-2019127912

PATIENT
  Age: 76 Year
  Sex: Female

DRUGS (1)
  1. LORAX//LORAZEPAM [Suspect]
     Active Substance: LORAZEPAM
     Indication: INSOMNIA
     Dosage: UNK
     Dates: end: 20160101

REACTIONS (4)
  - Tremor [Recovered/Resolved]
  - Femur fracture [Recovered/Resolved]
  - Dementia Alzheimer^s type [Fatal]
  - Lower limb fracture [Recovered/Resolved]

NARRATIVE: CASE EVENT DATE: 2002
